FAERS Safety Report 15264305 (Version 1)
Quarter: 2018Q3

REPORT INFORMATION
  Report Type: Report from Study
  Country: BR (occurrence: BR)
  Receive Date: 20180810
  Receipt Date: 20180810
  Transmission Date: 20181010
  Serious: Yes (Other)
  Sender: FDA-Public Use
  Company Number: BR-UCBSA-2017026528

PATIENT
  Age: 35 Year
  Sex: Female
  Weight: 78 kg

DRUGS (6)
  1. LEVETIRACETAM. [Suspect]
     Active Substance: LEVETIRACETAM
     Dosage: 250 MG IN MORNING AND 500 MG AT NIGHT
     Route: 048
     Dates: start: 201706, end: 201706
  2. TOPIRAMATE. [Concomitant]
     Active Substance: TOPIRAMATE
     Indication: PRODUCT USED FOR UNKNOWN INDICATION
  3. LEVETIRACETAM. [Suspect]
     Active Substance: LEVETIRACETAM
     Indication: EPILEPSY
     Dosage: 250 MG, 2X/DAY (BID)
     Route: 048
     Dates: start: 201706, end: 201706
  4. LEVETIRACETAM. [Suspect]
     Active Substance: LEVETIRACETAM
     Dosage: 250 MG EACH TABLET (8 TABLETS IN THE MORNING AND 8 TABLETS IN THE EVENING)
     Route: 048
     Dates: start: 201706, end: 201710
  5. URBANIL [Concomitant]
     Active Substance: CLOBAZAM
     Indication: PRODUCT USED FOR UNKNOWN INDICATION
  6. LEVETIRACETAM. [Suspect]
     Active Substance: LEVETIRACETAM
     Dosage: 500 MG IN MORNING AND 500 MG AT NIGHT
     Route: 048
     Dates: start: 201706, end: 201706

REACTIONS (9)
  - Muscle spasms [Unknown]
  - Overdose [Unknown]
  - Seizure [Recovered/Resolved]
  - Off label use [Unknown]
  - Shock [Unknown]
  - Fall [Unknown]
  - Memory impairment [Recovered/Resolved]
  - Loss of consciousness [Unknown]
  - Drug ineffective [Unknown]

NARRATIVE: CASE EVENT DATE: 201706
